FAERS Safety Report 20232878 (Version 1)
Quarter: 2021Q4

REPORT INFORMATION
  Report Type: Spontaneous
  Country: US (occurrence: None)
  Receive Date: 20211223
  Receipt Date: 20211223
  Transmission Date: 20220303
  Serious: No
  Sender: FDA-Public Use
  Company Number: None

PATIENT
  Age: 75 Year
  Sex: Female

DRUGS (2)
  1. DEFERASIROX [Suspect]
     Active Substance: DEFERASIROX
     Indication: Haemochromatosis
     Dosage: FREQUENCY : DAILY;?
     Route: 048
     Dates: start: 20210527
  2. DEFERASIROX [Suspect]
     Active Substance: DEFERASIROX
     Indication: Transfusion related complication

REACTIONS (3)
  - Pneumonia [None]
  - Renal pain [None]
  - Renal function test abnormal [None]

NARRATIVE: CASE EVENT DATE: 20211213
